FAERS Safety Report 16629395 (Version 2)
Quarter: 2020Q3

REPORT INFORMATION
  Report Type: Spontaneous
  Country: US (occurrence: US)
  Receive Date: 20190725
  Receipt Date: 20200717
  Transmission Date: 20201102
  Serious: No
  Sender: FDA-Public Use
  Company Number: US-LUPIN PHARMACEUTICALS INC.-2018-08594

PATIENT
  Age: 58 Year
  Sex: Female
  Weight: 70.3 kg

DRUGS (1)
  1. GAVILYTE ? C [Suspect]
     Active Substance: POLYETHYLENE GLYCOL 3350\POTASSIUM CHLORIDE\SODIUM BICARBONATE\SODIUM CHLORIDE\SODIUM SULFATE ANHYDROUS
     Indication: BOWEL PREPARATION
     Dosage: 240 GM, WHOLE BOTTLE
     Route: 048
     Dates: start: 20181128, end: 20181128

REACTIONS (1)
  - Drug ineffective [Unknown]

NARRATIVE: CASE EVENT DATE: 20181129
